FAERS Safety Report 5311725-8 (Version None)
Quarter: 2007Q2

REPORT INFORMATION
  Report Type: 
  Country: None (occurrence: None)
  Receive Date: 20070426
  Receipt Date: 20070426
  Transmission Date: 20071010
  Serious: Yes (Hospitalization)
  Sender: FDA-Public Use
  Company Number: None

PATIENT
  Age: 65 Year
  Sex: Female

DRUGS (16)
  1. LYRICA [Suspect]
     Indication: NEUROPATHY PERIPHERAL
     Dosage: 50 MG  TWICE DAILY  PO
     Route: 048
     Dates: start: 20061017, end: 20061027
  2. REGULAR INSULIN [Concomitant]
  3. HYDRALAZINE HCL [Concomitant]
  4. LISINOPRIL [Concomitant]
  5. CARVEDILOL [Concomitant]
  6. ESOMEPRAZOLE MAGNESIUM [Concomitant]
  7. POTASSIUM CHLORIDE [Concomitant]
  8. MONTELUKAST SODIUM [Concomitant]
  9. ALPRAZOLAM [Concomitant]
  10. CLONIDINE [Concomitant]
  11. DARBEPOETIN [Concomitant]
  12. LIDOCAINE [Concomitant]
  13. DOCUSATE [Concomitant]
  14. SEVELAMER [Concomitant]
  15. BETHANECHOL [Concomitant]
  16. PREGABALIN [Concomitant]

REACTIONS (3)
  - ASTERIXIS [None]
  - DYSKINESIA [None]
  - TREMOR [None]
